FAERS Safety Report 20830812 (Version 1)
Quarter: 2022Q2

REPORT INFORMATION
  Report Type: Spontaneous
  Country: PL (occurrence: PL)
  Receive Date: 20220515
  Receipt Date: 20220515
  Transmission Date: 20220720
  Serious: Yes (Other)
  Sender: FDA-Public Use
  Company Number: None

PATIENT
  Age: 8 Year
  Sex: Male

DRUGS (2)
  1. BUDESONIDE [Suspect]
     Active Substance: BUDESONIDE
     Route: 065
  2. IVY EXTRACT [Concomitant]
     Active Substance: IVY EXTRACT

REACTIONS (4)
  - Aggression [Unknown]
  - Psychomotor hyperactivity [Unknown]
  - Irritability [Unknown]
  - Dyspnoea [Unknown]
